FAERS Safety Report 7572284-2 (Version None)
Quarter: 2011Q2

REPORT INFORMATION
  Report Type: 
  Country: None (occurrence: None)
  Receive Date: 20110624
  Receipt Date: 20110616
  Transmission Date: 20111010
  Serious: Yes (Hospitalization)
  Sender: FDA-Public Use
  Company Number: PHHO2007US20875

PATIENT
  Sex: Male
  Weight: 143 kg

DRUGS (24)
  1. MOM [Concomitant]
     Dosage: 30 ML, UNK
  2. SENOKOT [Concomitant]
  3. WARFARIN SODIUM [Concomitant]
  4. ARANESP [Concomitant]
  5. ZOLOFT [Concomitant]
     Dosage: 50 MG, UNK
  6. TYLENOL-500 [Concomitant]
     Dosage: 650 MG, UNK
  7. ASCORBIC ACID [Concomitant]
  8. POTASSIUM [Concomitant]
  9. MS CONTIN [Concomitant]
  10. METOPROLOL TARTRATE [Concomitant]
     Dosage: 50 MG, UNK
  11. ZOFRAN [Concomitant]
     Dosage: 4 MG, UNK
  12. AFINITOR [Suspect]
     Indication: RENAL CANCER METASTATIC
     Dosage: CODE NOT BROKEN
     Route: 048
     Dates: start: 20070419, end: 20071029
  13. LIPITOR [Concomitant]
     Dosage: 80 MG, UNK
  14. PLAVIX [Concomitant]
  15. ASPIRIN [Concomitant]
  16. AFINITOR [Suspect]
     Dosage: CODE NOT BROKEN
     Route: 048
     Dates: start: 20071031
  17. BISACODYL [Concomitant]
     Dosage: 10 MG, UNK
  18. TRAMADOL HCL [Concomitant]
  19. CALCIUM CARBONATE [Concomitant]
     Dosage: 500 MG, UNK
  20. TOPROL-XL [Concomitant]
  21. OXYCODONE HCL [Concomitant]
     Dosage: 5 MG, UNK
  22. PROTONIX [Concomitant]
     Dosage: 20 MG, UNK
  23. NIFEREX (POLYSACCHARIDE-IRON COMPLEX) [Concomitant]
     Dosage: 150 MG, UNK
  24. NEXIUM [Concomitant]

REACTIONS (27)
  - MEDICAL DEVICE COMPLICATION [None]
  - FEMUR FRACTURE [None]
  - SWELLING [None]
  - ANAEMIA [None]
  - DYSPNOEA [None]
  - PATIENT-DEVICE INCOMPATIBILITY [None]
  - IMPAIRED HEALING [None]
  - PAIN IN EXTREMITY [None]
  - BODY TEMPERATURE INCREASED [None]
  - NEOPLASM MALIGNANT [None]
  - POSTOPERATIVE WOUND INFECTION [None]
  - CHILLS [None]
  - BLOOD GLUCOSE INCREASED [None]
  - TENDON RUPTURE [None]
  - WOUND INFECTION STAPHYLOCOCCAL [None]
  - WOUND DEHISCENCE [None]
  - METASTASES TO BONE [None]
  - NEOPLASM PROGRESSION [None]
  - HAEMORRHAGIC ANAEMIA [None]
  - HYPERGLYCAEMIA [None]
  - COUGH [None]
  - HAEMATOMA [None]
  - INTERNATIONAL NORMALISED RATIO DECREASED [None]
  - OXYGEN SATURATION DECREASED [None]
  - PYREXIA [None]
  - MUSCULOSKELETAL CHEST PAIN [None]
  - LUNG NEOPLASM [None]
